FAERS Safety Report 8502706 (Version 3)
Quarter: 2012Q4

REPORT INFORMATION
  Report Type: 
  Country: US (occurrence: US)
  Receive Date: 20120410
  Receipt Date: 20121220
  Transmission Date: 20130627
  Serious: Yes (Hospitalization)
  Sender: FDA-Public Use
  Company Number: US-BAYER-2012-032635

PATIENT
  Age: 20 Year
  Sex: Female
  Weight: 77 kg

DRUGS (5)
  1. YAZ [Suspect]
     Indication: PREMENSTRUAL DYSPHORIC DISORDER
     Dosage: 2 pills
     Dates: start: 201003, end: 201008
  2. YAZ [Suspect]
     Indication: PREMENSTRUAL SYNDROME
  3. ADVIL [Concomitant]
     Indication: CHEST PAIN
     Dosage: 2 Pills
  4. ADVIL [Concomitant]
     Indication: MUSCLE CRAMP
  5. GARDASIL [Concomitant]
     Dosage: UNK
     Dates: start: 20100623

REACTIONS (14)
  - Pulmonary embolism [Recovering/Resolving]
  - Deep vein thrombosis [Recovered/Resolved]
  - Pulmonary infarction [None]
  - Pain [None]
  - Injury [Recovering/Resolving]
  - Post-traumatic stress disorder [None]
  - General physical health deterioration [None]
  - Emotional distress [None]
  - Anxiety [None]
  - Chest pain [Recovering/Resolving]
  - Blood pressure decreased [Recovering/Resolving]
  - Presyncope [Recovering/Resolving]
  - Fear [None]
  - Panic disorder [None]
